FAERS Safety Report 6737470-X (Version None)
Quarter: 2010Q2

REPORT INFORMATION
  Report Type: 
  Country: None (occurrence: None)
  Receive Date: 20100524
  Receipt Date: 20100512
  Transmission Date: 20101027
  Serious: Yes (Other)
  Sender: FDA-Public Use
  Company Number: US-BAYER-201013943NA

PATIENT
  Age: 31 Year
  Sex: Female

DRUGS (3)
  1. YAZ [Suspect]
     Indication: DRUG USE FOR UNKNOWN INDICATION
     Route: 048
     Dates: start: 20030101, end: 20090101
  2. YASMIN [Suspect]
     Indication: DRUG USE FOR UNKNOWN INDICATION
     Route: 048
     Dates: start: 20040607, end: 20081027
  3. OCELLA [Suspect]
     Indication: DRUG USE FOR UNKNOWN INDICATION
     Route: 048
     Dates: start: 20081118, end: 20090603

REACTIONS (5)
  - CHOLECYSTECTOMY [None]
  - HYSTERECTOMY [None]
  - PALPITATIONS [None]
  - UTERINE HAEMORRHAGE [None]
  - VAGINAL HAEMORRHAGE [None]
